FAERS Safety Report 13296499 (Version 5)
Quarter: 2017Q3

REPORT INFORMATION
  Report Type: Spontaneous
  Country: IT (occurrence: IT)
  Receive Date: 20170305
  Receipt Date: 20170727
  Transmission Date: 20171127
  Serious: Yes (Other)
  Sender: FDA-Public Use
  Company Number: IT-ROCHE-1886745

PATIENT
  Age: 68 Year
  Sex: Female
  Weight: 64 kg

DRUGS (5)
  1. OLPRESS [Concomitant]
     Active Substance: OLMESARTAN MEDOXOMIL
  2. CONGESCOR [Concomitant]
     Active Substance: BISOPROLOL
  3. PACLITAXEL. [Suspect]
     Active Substance: PACLITAXEL
     Dosage: VII CYCLE
     Route: 042
  4. HERCEPTIN [Suspect]
     Active Substance: TRASTUZUMAB
     Indication: BREAST CANCER
     Dosage: DATE OF MOST RECENT DOSE: 10/JAN/2017
     Route: 058
     Dates: start: 20160726
  5. PACLITAXEL. [Suspect]
     Active Substance: PACLITAXEL
     Indication: BREAST CANCER
     Dosage: DATE OF MOST RECENT DOSE: 30/AUG/2016
     Route: 042
     Dates: start: 20160726

REACTIONS (10)
  - Diarrhoea [Recovering/Resolving]
  - Hypertension [Recovering/Resolving]
  - Constipation [Recovering/Resolving]
  - Cystitis [Recovering/Resolving]
  - Erythema [Not Recovered/Not Resolved]
  - Oedema peripheral [Recovering/Resolving]
  - Influenza [Unknown]
  - Dyspnoea exertional [Recovering/Resolving]
  - Palpitations [Recovered/Resolved]
  - Pyrexia [Not Recovered/Not Resolved]

NARRATIVE: CASE EVENT DATE: 20160729
